FAERS Safety Report 9598509 (Version 1)
Quarter: 2013Q4

REPORT INFORMATION
  Report Type: Spontaneous
  Country: US (occurrence: US)
  Receive Date: 20131004
  Receipt Date: 20131004
  Transmission Date: 20140711
  Serious: No
  Sender: FDA-Public Use
  Company Number: US-AMGEN-USASP2013023549

PATIENT
  Age: 31 Year
  Sex: Male
  Weight: 83.9 kg

DRUGS (6)
  1. ENBREL [Suspect]
     Indication: PRODUCT USED FOR UNKNOWN INDICATION
     Dosage: 50 MG, QWK
     Route: 058
  2. PREDNISONE [Concomitant]
     Dosage: 10 MG, UNK
  3. METHOTREXATE [Concomitant]
     Dosage: 2.5 MG, UNK
  4. VITAMIN D                          /00107901/ [Concomitant]
     Dosage: 400 UNIT, UNK
  5. CLARITIN                           /00413701/ [Concomitant]
     Dosage: 10 MG, UNK
  6. FOLIC ACID [Concomitant]
     Dosage: UNK

REACTIONS (1)
  - Pruritus [Unknown]
